FAERS Safety Report 5158665-5 (Version None)
Quarter: 2006Q4

REPORT INFORMATION
  Report Type: 
  Country: None (occurrence: None)
  Receive Date: 20061128
  Receipt Date: 20061117
  Transmission Date: 20070319
  Serious: Yes (Other)
  Sender: FDA-Public Use
  Company Number: NO-JNJFOC-20061102477

PATIENT
  Sex: Female

DRUGS (13)
  1. REMICADE [Suspect]
     Route: 042
  2. REMICADE [Suspect]
     Route: 042
  3. REMICADE [Suspect]
     Route: 042
  4. REMICADE [Suspect]
     Indication: RHEUMATOID ARTHRITIS
     Route: 042
  5. AZATHIOPRINE [Concomitant]
     Route: 065
  6. GLUCOPHAGE [Concomitant]
     Route: 048
  7. BRICANYL [Concomitant]
     Dosage: 4 DOSES PER 1 DAY
     Route: 055
  8. ZYRTEC [Concomitant]
     Route: 065
  9. APROVAL [Concomitant]
     Route: 048
  10. NOBLIGAN [Concomitant]
     Route: 065
  11. INSULIN MIXTARD [Concomitant]
     Route: 058
  12. INSULATARD NPH HUMAN [Concomitant]
     Route: 058
  13. FOLIC ACID [Concomitant]
     Route: 048

REACTIONS (5)
  - CHEST PAIN [None]
  - CHRONIC LYMPHOCYTIC LEUKAEMIA [None]
  - CONVULSION [None]
  - DYSPNOEA [None]
  - MEMORY IMPAIRMENT [None]
